FAERS Safety Report 5777013-0 (Version None)
Quarter: 2008Q2

REPORT INFORMATION
  Report Type: 
  Country: None (occurrence: None)
  Receive Date: 20080618
  Receipt Date: 20080403
  Transmission Date: 20081010
  Serious: Yes (Other)
  Sender: FDA-Public Use
  Company Number: US-ASTRAZENECA-2008UW08821

PATIENT

DRUGS (2)
  1. SYMBICORT [Suspect]
     Route: 055
  2. ANTI-ALLERGEN MEDICATION [Concomitant]

REACTIONS (2)
  - HYPERSENSITIVITY [None]
  - PHARYNGEAL OEDEMA [None]
